FAERS Safety Report 8601317-7 (Version None)
Quarter: 2012Q3

REPORT INFORMATION
  Report Type: 
  Country: None (occurrence: None)
  Receive Date: 20120817
  Receipt Date: 20120810
  Transmission Date: 20120928
  Serious: Yes (Hospitalization)
  Sender: FDA-Public Use
  Company Number: FR-AMGEN-FRACT2012044048

PATIENT
  Age: 83 Year
  Sex: Male

DRUGS (12)
  1. FOLINATE CALCIUM [Concomitant]
     Indication: GASTROOESOPHAGEAL CANCER
     Dosage: 340 MG, UNK
     Route: 042
     Dates: start: 20120418, end: 20120529
  2. GAVISCON [Concomitant]
     Indication: ABDOMINAL PAIN UPPER
     Dosage: UNK
     Route: 048
  3. CLINUTREN HP ENERGY [Concomitant]
     Indication: NUTRITIONAL SUPPORT
     Dosage: UNK
     Route: 048
     Dates: start: 20120419
  4. PANTOPRAZOLE [Concomitant]
     Indication: ABDOMINAL PAIN UPPER
     Dosage: UNK
     Route: 048
  5. FLECAINIDE ACETATE [Concomitant]
     Indication: ATRIAL FIBRILLATION
  6. PANITUMUMAB [Suspect]
     Indication: GASTROOESOPHAGEAL CANCER
     Dosage: 390 MG, UNK
     Route: 042
     Dates: start: 20120418, end: 20120529
  7. FLUOROURACIL [Concomitant]
     Indication: GASTROOESOPHAGEAL CANCER
     Dosage: UNK
     Route: 042
     Dates: start: 20120418, end: 20120529
  8. EXFORGE [Concomitant]
     Indication: HYPERTENSION
     Dosage: UNK
     Dates: end: 20120610
  9. JANUVIA [Concomitant]
     Indication: DIABETES MELLITUS
     Dosage: UNK
  10. OXALIPLATIN [Concomitant]
     Indication: GASTROOESOPHAGEAL CANCER
     Dosage: 145 MG, UNK
     Route: 042
     Dates: start: 20120418, end: 20120529
  11. CORDARONE [Concomitant]
     Indication: HYPERTENSION
  12. MORPHINE SULFATE [Concomitant]
     Indication: PAIN
     Dosage: UNK
     Route: 048
     Dates: start: 20120516

REACTIONS (1)
  - DEVICE RELATED INFECTION [None]
